FAERS Safety Report 11810425 (Version 2)
Quarter: 2015Q4

REPORT INFORMATION
  Report Type: Spontaneous
  Country: US (occurrence: US)
  Receive Date: 20151208
  Receipt Date: 20151230
  Transmission Date: 20160305
  Serious: Yes (Other)
  Sender: FDA-Public Use
  Company Number: US-BAYER-2015-483103

PATIENT
  Age: 27 Year
  Sex: Female
  Weight: 119.73 kg

DRUGS (2)
  1. MIRENA [Suspect]
     Active Substance: LEVONORGESTREL
     Indication: CONTRACEPTION
     Dosage: 20 MCG/24HR, CONT
     Route: 015
     Dates: start: 20150308, end: 20151119
  2. PRENATAL VITAMINS [Concomitant]
     Active Substance: VITAMINS

REACTIONS (13)
  - Pelvic pain [None]
  - Polycystic ovaries [None]
  - Device issue [None]
  - Libido decreased [None]
  - Abdominal pain lower [None]
  - Pelvic pain [None]
  - Amenorrhoea [None]
  - Device dislocation [None]
  - Pain [None]
  - Abdominal distension [None]
  - Abdominal pain [None]
  - Dyspareunia [Recovered/Resolved]
  - Ovarian cyst [None]

NARRATIVE: CASE EVENT DATE: 2015
